FAERS Safety Report 13388457 (Version 3)
Quarter: 2017Q2

REPORT INFORMATION
  Report Type: Report from Study
  Country: JP (occurrence: JP)
  Receive Date: 20170330
  Receipt Date: 20170524
  Transmission Date: 20170830
  Serious: Yes (Other)
  Sender: FDA-Public Use
  Company Number: JP-GLAXOSMITHKLINE-JP2017029343

PATIENT
  Sex: Male
  Weight: 47 kg

DRUGS (7)
  1. UMECLIDINIUM BR+VILANTEROL TRIFENATATE [Suspect]
     Active Substance: UMECLIDINIUM BROMIDE\VILANTEROL TRIFENATATE
     Indication: EMPHYSEMA
  2. AVOLVE [Concomitant]
     Active Substance: DUTASTERIDE
     Indication: BENIGN PROSTATIC HYPERPLASIA
     Dosage: UNK
  3. PROTECADIN [Concomitant]
     Active Substance: LAFUTIDINE
     Indication: DISEASE COMPLICATION
     Dosage: UNK
  4. DEPAS [Concomitant]
     Active Substance: ETIZOLAM
     Indication: DISEASE COMPLICATION
     Dosage: UNK
  5. HARNAL [Concomitant]
     Active Substance: TAMSULOSIN HYDROCHLORIDE
     Indication: DISEASE COMPLICATION
     Dosage: UNK
  6. UMECLIDINIUM BR+VILANTEROL TRIFENATATE [Suspect]
     Active Substance: UMECLIDINIUM BROMIDE\VILANTEROL TRIFENATATE
     Indication: CHRONIC OBSTRUCTIVE PULMONARY DISEASE
     Dosage: 1 DF, QD
     Route: 055
     Dates: start: 20150625
  7. BESACOLIN POWDER [Concomitant]
     Indication: DISEASE COMPLICATION
     Dosage: UNK

REACTIONS (2)
  - Chronic obstructive pulmonary disease [Recovering/Resolving]
  - Pneumonia [Recovered/Resolved]

NARRATIVE: CASE EVENT DATE: 20160222
